FAERS Safety Report 8833925 (Version 1)
Quarter: 2012Q4

REPORT INFORMATION
  Report Type: 
  Country: JP (occurrence: JP)
  Receive Date: 20121010
  Receipt Date: 20121010
  Transmission Date: 20130627
  Serious: Yes (Other)
  Sender: FDA-Public Use
  Company Number: JP-MYLANLABS-2012S1020447

PATIENT
  Age: 66 Year
  Sex: Male

DRUGS (3)
  1. CARBOPLATIN [Suspect]
     Indication: LUNG ADENOCARCINOMA
     Dates: start: 201012
  2. PACLITAXEL [Suspect]
     Indication: LUNG ADENOCARCINOMA
     Dates: start: 201012
  3. BEVACIZUMAB [Suspect]
     Indication: LUNG ADENOCARCINOMA
     Dates: start: 201012

REACTIONS (1)
  - Atrioventricular block complete [Unknown]
